FAERS Safety Report 14574352 (Version 2)
Quarter: 2018Q1

REPORT INFORMATION
  Report Type: Spontaneous
  Country: US (occurrence: US)
  Receive Date: 20180226
  Receipt Date: 20180327
  Transmission Date: 20180509
  Serious: Yes (Other)
  Sender: FDA-Public Use
  Company Number: US-SUNOVION-2018SUN000676

PATIENT
  Sex: Male
  Weight: 100.23 kg

DRUGS (9)
  1. SEROQUEL [Suspect]
     Active Substance: QUETIAPINE FUMARATE
     Indication: PRODUCT USED FOR UNKNOWN INDICATION
     Dosage: UNK
     Route: 048
     Dates: start: 2017, end: 2017
  2. CRESTOR [Concomitant]
     Active Substance: ROSUVASTATIN CALCIUM
     Route: 048
  3. LATUDA [Suspect]
     Active Substance: LURASIDONE HYDROCHLORIDE
     Indication: PRODUCT USED FOR UNKNOWN INDICATION
     Dosage: UNK
     Route: 048
     Dates: start: 2017, end: 2017
  4. VITAMIN B COMPLEX [Concomitant]
     Active Substance: CYANOCOBALAMIN\DEXPANTHENOL\NIACINAMIDE\PYRIDOXINE HYDROCHLORIDE\RIBOFLAVIN 5^-PHOSPHATE SODIUM\THIAMINE HYDROCHLORIDE\VITAMIN B COMPLEX
  5. GLUCOSAMINE [Concomitant]
     Active Substance: GLUCOSAMINE
  6. ABILIFY [Suspect]
     Active Substance: ARIPIPRAZOLE
     Indication: BIPOLAR DISORDER
     Dosage: UNK
     Dates: end: 2017
  7. METOPROLOL. [Suspect]
     Active Substance: METOPROLOL
  8. COQ10 [Concomitant]
     Active Substance: UBIDECARENONE
  9. UBIDECARENONE [Concomitant]
     Active Substance: UBIDECARENONE
     Indication: MUSCLE DISORDER

REACTIONS (17)
  - Hypersomnia [Unknown]
  - Restlessness [Unknown]
  - Weight increased [Unknown]
  - Mental impairment [Unknown]
  - Sluggishness [Unknown]
  - Pain [Unknown]
  - Restless legs syndrome [Unknown]
  - Malaise [Unknown]
  - Musculoskeletal stiffness [Unknown]
  - Confusional state [Unknown]
  - Insomnia [Unknown]
  - Diarrhoea [Unknown]
  - Suicidal ideation [Recovered/Resolved]
  - Nausea [Unknown]
  - Memory impairment [Unknown]
  - Myalgia [Unknown]
  - Dyskinesia [Unknown]
